FAERS Safety Report 25129396 (Version 1)
Quarter: 2025Q1

REPORT INFORMATION
  Report Type: Spontaneous
  Country: US (occurrence: None)
  Receive Date: 20250326
  Receipt Date: 20250326
  Transmission Date: 20250409
  Serious: Yes (unspecified)
  Sender: FDA-CTU
  Company Number: None

PATIENT
  Age: 8 Month
  Sex: Male
  Weight: 9.38 kg

DRUGS (2)
  1. VIGABATRIN [Suspect]
     Active Substance: VIGABATRIN
     Dosage: 7 ML TWICE A DAY ORAL
     Route: 048
     Dates: start: 20250201
  2. Vigabatrin oral suspension [Concomitant]
     Dates: start: 20250201

REACTIONS (1)
  - Perioral dermatitis [None]

NARRATIVE: CASE EVENT DATE: 20250311
